FAERS Safety Report 4734490-1 (Version None)
Quarter: 2005Q3

REPORT INFORMATION
  Report Type: 
  Country: None (occurrence: None)
  Receive Date: 20050721
  Receipt Date: 20050419
  Transmission Date: 20060218
  Serious: No
  Sender: FDA-Public Use
  Company Number: 2005SP000243

PATIENT
  Age: 76 Year
  Sex: Male
  Weight: 81.6475 kg

DRUGS (3)
  1. LUNESTA [Suspect]
     Indication: INSOMNIA
     Dosage: 1 MG; HS; ORAL; SEE IMAGE
     Route: 048
     Dates: start: 20050416, end: 20050417
  2. LUNESTA [Suspect]
     Indication: INSOMNIA
     Dosage: 1 MG; HS; ORAL; SEE IMAGE
     Route: 048
     Dates: start: 20050418, end: 20050418
  3. LUNESTA [Suspect]
     Indication: INSOMNIA
     Dosage: 1 MG; HS; ORAL; SEE IMAGE
     Route: 048
     Dates: start: 20050419, end: 20050420

REACTIONS (2)
  - DRUG INEFFECTIVE [None]
  - INSOMNIA [None]
